FAERS Safety Report 25194927 (Version 1)
Quarter: 2025Q2

REPORT INFORMATION
  Report Type: Spontaneous
  Country: SA (occurrence: SA)
  Receive Date: 20250415
  Receipt Date: 20250415
  Transmission Date: 20250717
  Serious: Yes (Other)
  Sender: JOHNSON AND JOHNSON
  Company Number: SA-JNJFOC-20250414642

PATIENT

DRUGS (1)
  1. TOPIRAMATE [Suspect]
     Active Substance: TOPIRAMATE
     Indication: Epilepsy
     Route: 065

REACTIONS (10)
  - Angle closure glaucoma [Unknown]
  - Nephrolithiasis [Unknown]
  - Facial paralysis [Unknown]
  - Facial paralysis [Unknown]
  - Coagulopathy [Unknown]
  - Mental disorder [Unknown]
  - Drug hypersensitivity [Unknown]
  - Myopia [Unknown]
  - Migraine [Unknown]
  - Aphasia [Unknown]
